FAERS Safety Report 4738375-6 (Version None)
Quarter: 2005Q3

REPORT INFORMATION
  Report Type: 
  Country: None (occurrence: None)
  Receive Date: 20050809
  Receipt Date: 20050722
  Transmission Date: 20060218
  Serious: Yes (Hospitalization)
  Sender: FDA-Public Use
  Company Number: US-GLAXOSMITHKLINE-A0567269A

PATIENT
  Age: 42 Year
  Sex: Female

DRUGS (6)
  1. IMITREX [Suspect]
     Indication: MIGRAINE
     Dosage: 1SPR AS REQUIRED
     Route: 045
  2. IMITREX [Suspect]
  3. TOPAMAX [Concomitant]
  4. PROZAC [Concomitant]
  5. ATENOLOL [Concomitant]
  6. LESCOL [Concomitant]

REACTIONS (3)
  - DRUG INEFFECTIVE [None]
  - GALLBLADDER DISORDER [None]
  - PHARMACEUTICAL PRODUCT COMPLAINT [None]
